FAERS Safety Report 7921208-4 (Version None)
Quarter: 2011Q4

REPORT INFORMATION
  Report Type: 
  Country: None (occurrence: None)
  Receive Date: 20111117
  Receipt Date: 20111110
  Transmission Date: 20120403
  Serious: Yes (Hospitalization)
  Sender: FDA-Public Use
  Company Number: US-CELGENEUS-163-AB007-11103241

PATIENT
  Sex: Male
  Weight: 75.4 kg

DRUGS (11)
  1. TRANDATE [Concomitant]
     Dosage: 200 MILLIGRAM
     Route: 048
     Dates: start: 20111004
  2. PREVACID [Concomitant]
     Route: 065
  3. ASPIRIN [Concomitant]
     Route: 065
  4. PRAVACHOL [Concomitant]
     Dosage: 40 MILLIGRAM
     Route: 048
     Dates: start: 20111004
  5. PROCHLORPERAZINE MALEATE [Concomitant]
     Indication: NAUSEA
     Dosage: 10 MILLIGRAM
     Route: 048
     Dates: start: 20111026
  6. OXYCODONE HCL [Concomitant]
     Indication: PAIN
     Dosage: 15 MILLIGRAM
     Route: 048
     Dates: start: 20111021
  7. GEMCITABINE [Suspect]
     Dosage: 1000 MILLIGRAM/SQ. METER
     Route: 041
     Dates: start: 20111026
  8. OXYCODONE HCL [Concomitant]
     Dosage: 5 MILLIGRAM
     Route: 048
     Dates: start: 20111004
  9. ABRAXANE [Suspect]
     Dosage: 125 MILLIGRAM/SQ. METER
     Route: 041
     Dates: start: 20111026
  10. FENTANYL [Concomitant]
     Dosage: 25 MICROGRAM
     Route: 062
     Dates: start: 20111025
  11. LOTENSIN [Concomitant]
     Dosage: 40 MILLIGRAM
     Route: 048
     Dates: start: 20111004

REACTIONS (1)
  - PLEURAL EFFUSION [None]
